FAERS Safety Report 9637057 (Version 1)
Quarter: 2013Q4

REPORT INFORMATION
  Report Type: Spontaneous
  Country: US (occurrence: US)
  Receive Date: 20131022
  Receipt Date: 20131022
  Transmission Date: 20140711
  Serious: Yes (Hospitalization)
  Sender: FDA-Public Use
  Company Number: US-PAR PHARMACEUTICAL, INC-2013SCPR007720

PATIENT
  Sex: 0

DRUGS (2)
  1. DOXYCYCLINE [Suspect]
     Indication: UPPER RESPIRATORY TRACT INFECTION
     Dosage: UNK, UNKNOWN
     Route: 065
  2. CELEXA                             /00582602/ [Concomitant]
     Indication: ANXIETY
     Dosage: 60 MG, / DAY
     Route: 065

REACTIONS (1)
  - Pancreatitis acute [Recovered/Resolved]
